FAERS Safety Report 25584076 (Version 1)
Quarter: 2025Q3

REPORT INFORMATION
  Report Type: Spontaneous
  Country: EU (occurrence: None)
  Receive Date: 20250721
  Receipt Date: 20250721
  Transmission Date: 20251020
  Serious: Yes (Hospitalization)
  Sender: ENCUBE ETHICALS
  Company Number: EU-Encube-002053

PATIENT
  Age: 78 Year
  Sex: Female

DRUGS (5)
  1. KETOCONAZOLE [Suspect]
     Active Substance: KETOCONAZOLE
     Indication: Hyperadrenocorticism
  2. POTASSIUM [Concomitant]
     Active Substance: POTASSIUM
     Indication: Blood potassium decreased
     Route: 048
  3. SPIRONOLACTONE [Concomitant]
     Active Substance: SPIRONOLACTONE
     Indication: Hypertension
  4. SULFAMETHOXAZOLE\TRIMETHOPRIM [Concomitant]
     Active Substance: SULFAMETHOXAZOLE\TRIMETHOPRIM
  5. NADROPARIN [Concomitant]
     Active Substance: NADROPARIN
     Route: 058

REACTIONS (4)
  - Gastrointestinal disorder [Unknown]
  - Dehydration [Unknown]
  - Drug intolerance [Unknown]
  - Off label use [Unknown]
